FAERS Safety Report 7854165-X (Version None)
Quarter: 2011Q4

REPORT INFORMATION
  Report Type: 
  Country: None (occurrence: None)
  Receive Date: 20111026
  Receipt Date: 20101130
  Transmission Date: 20120403
  Serious: No
  Sender: FDA-Public Use
  Company Number: US-BRISTOL-MYERS SQUIBB COMPANY-15410749

PATIENT
  Sex: Female

DRUGS (5)
  1. GRAPE JUICE [Interacting]
     Dosage: JUICE IN THE MORNING, AND SOMETIMES I HAVE ANOTHER SMALL GLASS IN THE AFTERNOON
  2. GABAPENTIN [Concomitant]
     Dosage: THREE IN THE MORNING AND THREE AT NIGHT AND ALSO TWO GABAPENTIN AT MIDDAY
  3. LITHIUM CITRATE [Concomitant]
  4. AMBIEN [Concomitant]
     Indication: SOMNOLENCE
  5. BUSPAR [Suspect]
     Indication: GENERALISED ANXIETY DISORDER
     Dosage: STARTED TAKING 10 DAYS AGO
     Dates: start: 20101101

REACTIONS (2)
  - DRUG INTERACTION [None]
  - PAIN IN EXTREMITY [None]
